FAERS Safety Report 24335911 (Version 1)
Quarter: 2024Q3

REPORT INFORMATION
  Report Type: Report from Study
  Country: ID (occurrence: ID)
  Receive Date: 20240919
  Receipt Date: 20240919
  Transmission Date: 20241017
  Serious: No
  Sender: ROCHE
  Company Number: ID-ROCHE-3427242

PATIENT
  Age: 52 Year
  Sex: Female

DRUGS (15)
  1. OSELTAMIVIR [Suspect]
     Active Substance: OSELTAMIVIR
     Indication: COVID-19
     Route: 065
  2. LANSOPRAZOLE [Concomitant]
     Active Substance: LANSOPRAZOLE
  3. ZINC [Concomitant]
     Active Substance: ZINC
  4. AZITROMISIN [Concomitant]
  5. VITAMIN C [Concomitant]
     Active Substance: ASCORBIC ACID
  6. POVIDONE-IODINE [Concomitant]
     Active Substance: POVIDONE-IODINE
  7. METOCLOPRAMIDE [Concomitant]
     Active Substance: METOCLOPRAMIDE
  8. EPERISONE HYDROCHLORIDE [Concomitant]
     Active Substance: EPERISONE HYDROCHLORIDE
  9. ROSUVASTATIN [Concomitant]
     Active Substance: ROSUVASTATIN\ROSUVASTATIN CALCIUM
  10. DICLOFENAC SODIUM [Concomitant]
     Active Substance: DICLOFENAC\DICLOFENAC SODIUM
  11. DIAZEPAM [Concomitant]
     Active Substance: DIAZEPAM
  12. ONDANSETRON [Concomitant]
     Active Substance: ONDANSETRON
  13. DOMPERIDONE [Concomitant]
     Active Substance: DOMPERIDONE
  14. CODEINE [Concomitant]
     Active Substance: CODEINE
  15. RANITIDINE HYDROCHLORIDE [Concomitant]
     Active Substance: RANITIDINE HYDROCHLORIDE

REACTIONS (2)
  - Off label use [Unknown]
  - Nausea [Unknown]
